FAERS Safety Report 6397566-1 (Version None)
Quarter: 2009Q4

REPORT INFORMATION
  Report Type: 
  Country: None (occurrence: None)
  Receive Date: 20091012
  Receipt Date: 20090827
  Transmission Date: 20100525
  Serious: No
  Sender: FDA-Public Use
  Company Number: US-BAYER-200931320NA

PATIENT
  Age: 23 Year
  Sex: Female
  Weight: 64 kg

DRUGS (1)
  1. MAGNEVIST [Suspect]
     Indication: NUCLEAR MAGNETIC RESONANCE IMAGING
     Dosage: TOTAL DAILY DOSE: 16 ML  UNIT DOSE: 100 ML
     Route: 042
     Dates: start: 20090826, end: 20090826

REACTIONS (4)
  - COUGH [None]
  - NASAL CONGESTION [None]
  - RESPIRATORY TRACT CONGESTION [None]
  - SNEEZING [None]
